FAERS Safety Report 20986449 (Version 1)
Quarter: 2022Q2

REPORT INFORMATION
  Report Type: 
  Country: None (occurrence: None)
  Receive Date: 20220621
  Receipt Date: 20220621
  Transmission Date: 20220721
  Serious: Yes (Other)
  Sender: FDA-Public Use
  Company Number: None

PATIENT
  Age: 77 Year
  Sex: Female

DRUGS (1)
  1. ZIOPTAN [Suspect]
     Active Substance: TAFLUPROST

REACTIONS (6)
  - Eye irritation [Recovered/Resolved]
  - Neuropathy peripheral [Recovered/Resolved]
  - Accidental overdose [Recovered/Resolved]
  - Treatment noncompliance [Recovered/Resolved]
  - Urinary tract infection [None]
  - Blood urine present [None]
